FAERS Safety Report 11748273 (Version 1)
Quarter: 2015Q4

REPORT INFORMATION
  Report Type: Report from Study
  Country: BR (occurrence: BR)
  Receive Date: 20151117
  Receipt Date: 20151117
  Transmission Date: 20160304
  Serious: Yes (Other)
  Sender: FDA-Public Use
  Company Number: PHHY2015BR006919

PATIENT
  Sex: Female
  Weight: 75 kg

DRUGS (2)
  1. VASODIPINA [Concomitant]
     Indication: HEADACHE
     Dosage: 3 DF, DAILY
     Route: 065
     Dates: start: 2010
  2. ACLASTA [Suspect]
     Active Substance: ZOLEDRONIC ACID
     Indication: OSTEOPOROSIS
     Dosage: 5 MG, Q12MO
     Route: 042
     Dates: start: 2010

REACTIONS (5)
  - Deformity [Unknown]
  - Pain [Not Recovered/Not Resolved]
  - Inflammation [Recovering/Resolving]
  - Eye infection [Unknown]
  - Accident [Unknown]
